FAERS Safety Report 7689372-2 (Version None)
Quarter: 2011Q3

REPORT INFORMATION
  Report Type: 
  Country: None (occurrence: None)
  Receive Date: 20110817
  Receipt Date: 20110725
  Transmission Date: 20111222
  Serious: Yes (Other)
  Sender: FDA-Public Use
  Company Number: JP-BAYER-2011-065047

PATIENT
  Age: 70 Year
  Sex: Female

DRUGS (2)
  1. NEXAVAR [Suspect]
     Indication: RENAL CELL CARCINOMA
     Dosage: 400 MG, BID
     Route: 048
  2. CELECOXIB [Concomitant]
     Indication: PAIN MANAGEMENT
     Dosage: 200 MG, BID
     Route: 048

REACTIONS (3)
  - RED BLOOD CELL COUNT DECREASED [None]
  - WHITE BLOOD CELL COUNT DECREASED [None]
  - LIVER FUNCTION TEST ABNORMAL [None]
